FAERS Safety Report 9932310 (Version 1)
Quarter: 2014Q1

REPORT INFORMATION
  Report Type: Spontaneous
  Country: US (occurrence: None)
  Receive Date: 20140227
  Receipt Date: 20140227
  Transmission Date: 20141002
  Serious: Yes (Hospitalization)
  Sender: FDA-Public Use
  Company Number: None

PATIENT
  Age: 74 Year
  Sex: Male
  Weight: 72.8 kg

DRUGS (2)
  1. AVASTIN [Suspect]
     Indication: COLON CANCER METASTATIC
     Dates: start: 20140214
  2. XELODA [Concomitant]

REACTIONS (4)
  - Mental status changes [None]
  - Convulsion [None]
  - Posterior reversible encephalopathy syndrome [None]
  - Blood pressure increased [None]
